FAERS Safety Report 20239250 (Version 1)
Quarter: 2021Q4

REPORT INFORMATION
  Report Type: Report from Study
  Country: JP (occurrence: JP)
  Receive Date: 20211228
  Receipt Date: 20211228
  Transmission Date: 20220304
  Serious: Yes (Other)
  Sender: FDA-Public Use
  Company Number: JP-DSJP-DSJ-2021-133099AA

PATIENT
  Age: 59 Year
  Sex: Male
  Weight: 60 kg

DRUGS (8)
  1. EDOXABAN TOSYLATE [Suspect]
     Active Substance: EDOXABAN TOSYLATE
     Indication: Atrial fibrillation
     Dosage: 60 MG, QD
     Route: 048
     Dates: start: 20150327
  2. HEPARIN [Concomitant]
     Active Substance: HEPARIN SODIUM
     Dosage: 5000 IU
     Route: 065
  3. HEPARIN [Concomitant]
     Active Substance: HEPARIN SODIUM
     Dosage: 1000 IU/H
     Route: 065
  4. PROTAMINE SULFATE [Concomitant]
     Active Substance: PROTAMINE SULFATE
     Indication: Heparin neutralisation therapy
     Dosage: UNK
     Route: 065
  5. BEPRIDIL [Concomitant]
     Active Substance: BEPRIDIL
     Indication: Atrial fibrillation
     Dosage: 100 MG, BID
     Route: 048
     Dates: start: 20150327
  6. APRINDINE HYDROCHLORIDE [Concomitant]
     Active Substance: APRINDINE HYDROCHLORIDE
     Indication: Atrial fibrillation
     Dosage: 20 MG, BID
     Route: 048
     Dates: start: 20150327
  7. PREDONINE [Concomitant]
     Active Substance: PREDNISOLONE
     Indication: Myasthenia gravis
     Dosage: 25 MG, QD
     Route: 048
     Dates: start: 1993
  8. DIPRIVAN [Concomitant]
     Active Substance: PROPOFOL
     Dosage: UNK
     Route: 042
     Dates: start: 20171005

REACTIONS (2)
  - Arteriovenous fistula [Recovered/Resolved]
  - Puncture site haematoma [Recovered/Resolved]

NARRATIVE: CASE EVENT DATE: 20171009
